FAERS Safety Report 6688353-5 (Version None)
Quarter: 2010Q2

REPORT INFORMATION
  Report Type: 
  Country: None (occurrence: None)
  Receive Date: 20100420
  Receipt Date: 20100409
  Transmission Date: 20101027
  Serious: Yes (Other)
  Sender: FDA-Public Use
  Company Number: PHHY2010JP18295

PATIENT
  Age: 63 Year
  Sex: Male

DRUGS (3)
  1. NEORAL [Suspect]
     Indication: PSORIASIS
     Dosage: 150 MG/DAY
     Dates: start: 20060201, end: 20060401
  2. NEORAL [Suspect]
     Dosage: 100MG/DAY
     Dates: start: 20060401, end: 20070401
  3. NEORAL [Suspect]
     Dosage: UNK

REACTIONS (6)
  - AUTOIMMUNE PANCREATITIS [None]
  - DIABETES MELLITUS INADEQUATE CONTROL [None]
  - PANCREATECTOMY [None]
  - PANCREATIC CARCINOMA [None]
  - PANCREATIC DUCT STENOSIS [None]
  - RENAL IMPAIRMENT [None]
